FAERS Safety Report 9209627 (Version 1)
Quarter: 2013Q1

REPORT INFORMATION
  Report Type: Spontaneous
  Country: US (occurrence: None)
  Receive Date: 20120820
  Receipt Date: 20120820
  Transmission Date: 20140127
  Serious: Yes (Other)
  Sender: FDA-Public Use
  Company Number: 1000031478

PATIENT
  Age: 68 Year
  Sex: Male

DRUGS (12)
  1. VIIBRYD [Suspect]
     Indication: MAJOR DEPRESSION
     Route: 048
     Dates: start: 20120430, end: 20120505
  2. VIIBRYD [Suspect]
     Route: 048
     Dates: start: 20120520, end: 201206
  3. VYTORIN [Concomitant]
  4. VALIUM [Concomitant]
  5. PERCOCET [Concomitant]
  6. OXYCODONE [Concomitant]
  7. OXYCONTIN [Concomitant]
  8. CIALIS [Concomitant]
  9. FINASTERIDE [Concomitant]
  10. LISINOPRIL [Concomitant]
  11. TAMSULOSIN [Concomitant]
  12. PANTOPRAZOLE [Concomitant]

REACTIONS (1)
  - Mania [None]
